FAERS Safety Report 9910204 (Version 2)
Quarter: 2014Q1

REPORT INFORMATION
  Report Type: Spontaneous
  Country: US (occurrence: US)
  Receive Date: 20140219
  Receipt Date: 20140219
  Transmission Date: 20141002
  Serious: Yes (Other)
  Sender: FDA-Public Use
  Company Number: US-GE HEALTHCARE MEDICAL DIAGNOSTICS-OSCN-PR-0906S-0284

PATIENT
  Sex: Male

DRUGS (12)
  1. GADOLINIUM (UNSPECIFIED) [Suspect]
     Indication: PRODUCT USED FOR UNKNOWN INDICATION
     Dates: start: 2005, end: 2005
  2. GADOLINIUM (UNSPECIFIED) [Suspect]
     Dates: start: 2006, end: 2006
  3. OMNISCAN [Suspect]
     Indication: PRODUCT USED FOR UNKNOWN INDICATION
     Dates: start: 2005, end: 2005
  4. OMNISCAN [Suspect]
     Dates: start: 2006, end: 2006
  5. MAGNEVIST [Suspect]
     Indication: PRODUCT USED FOR UNKNOWN INDICATION
     Route: 042
     Dates: start: 2005, end: 2005
  6. MAGNEVIST [Suspect]
     Route: 042
     Dates: start: 2006, end: 2006
  7. OPTIMARK [Suspect]
     Indication: PRODUCT USED FOR UNKNOWN INDICATION
     Route: 042
     Dates: start: 2005, end: 2005
  8. OPTIMARK [Suspect]
     Route: 042
     Dates: start: 2006, end: 2006
  9. MULTIHANCE [Suspect]
     Indication: PRODUCT USED FOR UNKNOWN INDICATION
     Route: 042
     Dates: start: 2005, end: 2005
  10. MULTIHANCE [Suspect]
     Dates: start: 2006, end: 2006
  11. PROHANCE [Suspect]
     Indication: PRODUCT USED FOR UNKNOWN INDICATION
     Route: 042
     Dates: start: 2005, end: 2005
  12. PROHANCE [Suspect]
     Route: 042
     Dates: start: 2006, end: 2006

REACTIONS (1)
  - Nephrogenic systemic fibrosis [Not Recovered/Not Resolved]
